FAERS Safety Report 5957724-4 (Version None)
Quarter: 2008Q4

REPORT INFORMATION
  Report Type: 
  Country: None (occurrence: None)
  Receive Date: 20081119
  Receipt Date: 20081107
  Transmission Date: 20090506
  Serious: Yes (Hospitalization)
  Sender: FDA-Public Use
  Company Number: CH-ASTRAZENECA-2008PK02440

PATIENT
  Age: 65 Year
  Sex: Male

DRUGS (11)
  1. ZESTRIL [Suspect]
     Indication: CARDIAC FAILURE
     Route: 048
     Dates: start: 20070901, end: 20080109
  2. DITROPAN [Suspect]
     Route: 048
     Dates: end: 20080109
  3. PREDNISONE TAB [Concomitant]
     Indication: GOUT
     Route: 048
     Dates: start: 20030101
  4. TOREM [Concomitant]
     Indication: CARDIAC FAILURE
     Route: 048
     Dates: start: 20071101, end: 20080109
  5. ZAROXOLYN [Concomitant]
     Indication: CARDIAC FAILURE
     Route: 048
     Dates: start: 20030101, end: 20080109
  6. INSULIN [Concomitant]
     Indication: TYPE 1 DIABETES MELLITUS
     Route: 058
  7. ASPIRIN [Concomitant]
     Indication: CARDIAC FAILURE
     Route: 048
  8. PANTOZOL [Concomitant]
     Route: 048
     Dates: start: 20030101, end: 20080109
  9. QUANTALAN [Concomitant]
     Indication: GASTROENTERITIS
     Route: 048
     Dates: start: 20070401, end: 20080109
  10. QUANTALAN [Concomitant]
     Indication: COLITIS
     Route: 048
     Dates: start: 20070401, end: 20080109
  11. ZOLPIDEM [Concomitant]
     Route: 048
     Dates: end: 20080109

REACTIONS (3)
  - DERMATITIS EXFOLIATIVE [None]
  - EOSINOPHILIA [None]
  - RENAL FAILURE ACUTE [None]
